FAERS Safety Report 6838141-1 (Version None)
Quarter: 2010Q3

REPORT INFORMATION
  Report Type: 
  Country: None (occurrence: None)
  Receive Date: 20100713
  Receipt Date: 20070531
  Transmission Date: 20110219
  Serious: Yes (Other)
  Sender: FDA-Public Use
  Company Number: US-PFIZER INC-2007046091

PATIENT
  Sex: Male
  Weight: 76.4 kg

DRUGS (5)
  1. CHANTIX [Suspect]
     Indication: SMOKING CESSATION THERAPY
     Dates: start: 20070523
  2. CADUET [Concomitant]
  3. ACETYLSALICYLIC ACID [Concomitant]
  4. MULTI-VITAMINS [Concomitant]
  5. MUCINEX [Concomitant]

REACTIONS (3)
  - BLOOD PRESSURE INCREASED [None]
  - DIZZINESS [None]
  - SYNCOPE [None]
